FAERS Safety Report 18723215 (Version 1)
Quarter: 2021Q1

REPORT INFORMATION
  Report Type: Spontaneous
  Country: US (occurrence: US)
  Receive Date: 20210109
  Receipt Date: 20210109
  Transmission Date: 20210419
  Serious: No
  Sender: FDA-Public Use
  Company Number: None

PATIENT
  Age: 68 Year
  Sex: Female
  Weight: 65.25 kg

DRUGS (7)
  1. LANTAPROST EYE DROPS [Concomitant]
  2. MAXALT TABLETS 10MG [Concomitant]
  3. VITAMIN D 2000 IU [Concomitant]
  4. BAMLANIVIMAB. [Suspect]
     Active Substance: BAMLANIVIMAB
     Indication: COVID-19
     Route: 042
     Dates: start: 20210107, end: 20210107
  5. ZETIA [Concomitant]
     Active Substance: EZETIMIBE
  6. CELEBREX [Concomitant]
     Active Substance: CELECOXIB
  7. ASA 81MG [Concomitant]
     Active Substance: ASPIRIN

REACTIONS (5)
  - Infusion related reaction [None]
  - Pyrexia [None]
  - Tremor [None]
  - Chills [None]
  - Headache [None]

NARRATIVE: CASE EVENT DATE: 20210107
